FAERS Safety Report 5400406-8 (Version None)
Quarter: 2007Q3

REPORT INFORMATION
  Report Type: 
  Country: None (occurrence: None)
  Receive Date: 20070730
  Receipt Date: 20070720
  Transmission Date: 20080115
  Serious: Yes (Hospitalization)
  Sender: FDA-Public Use
  Company Number: B0480158A

PATIENT
  Age: 72 Year
  Sex: Female

DRUGS (1)
  1. ROPINIROLE HCL [Suspect]
     Indication: PARKINSON'S DISEASE
     Route: 048
     Dates: start: 20070228

REACTIONS (1)
  - LUNG INFECTION [None]
